FAERS Safety Report 7678660-1 (Version None)
Quarter: 2011Q3

REPORT INFORMATION
  Report Type: 
  Country: None (occurrence: None)
  Receive Date: 20110811
  Receipt Date: 20110803
  Transmission Date: 20111222
  Serious: Yes (Other)
  Sender: FDA-Public Use
  Company Number: US-US-EMD SERONO, INC.-7075468

PATIENT
  Sex: Female
  Weight: 95 kg

DRUGS (8)
  1. REBIF [Suspect]
     Indication: MULTIPLE SCLEROSIS
     Route: 058
     Dates: start: 20080626
  2. ASPIRIN [Concomitant]
  3. FOLIC ACID [Concomitant]
  4. FISH OIL [Concomitant]
  5. TOPROL-XL [Concomitant]
  6. THYROID MEDICATION [Concomitant]
     Indication: THYROID DISORDER
  7. VITAMIN D [Concomitant]
  8. HYZAAR [Concomitant]

REACTIONS (1)
  - DIABETES MELLITUS [None]
